FAERS Safety Report 11731004 (Version 1)
Quarter: 2015Q4

REPORT INFORMATION
  Report Type: Spontaneous
  Country: US (occurrence: US)
  Receive Date: 20151110
  Receipt Date: 20151110
  Transmission Date: 20160304
  Serious: No
  Sender: FDA-Public Use
  Company Number: US-ELI_LILLY_AND_COMPANY-US201202007905

PATIENT
  Age: 62 Year
  Sex: Female

DRUGS (1)
  1. FORTEO [Suspect]
     Active Substance: TERIPARATIDE
     Indication: OSTEOPOROSIS
     Dosage: 20 UG, QD
     Route: 065
     Dates: start: 201202, end: 201202

REACTIONS (7)
  - Adverse drug reaction [Unknown]
  - Headache [Unknown]
  - Intentional product misuse [Unknown]
  - Insomnia [Unknown]
  - Arthralgia [Unknown]
  - Heart rate irregular [Unknown]
  - Myalgia [Unknown]

NARRATIVE: CASE EVENT DATE: 201202
